FAERS Safety Report 5183590-3 (Version None)
Quarter: 2006Q4

REPORT INFORMATION
  Report Type: 
  Country: None (occurrence: None)
  Receive Date: 20061220
  Receipt Date: 20060124
  Transmission Date: 20070319
  Serious: No
  Sender: FDA-Public Use
  Company Number: US-GLAXOSMITHKLINE-A0590631A

PATIENT
  Age: 50 Year
  Sex: Female

DRUGS (1)
  1. NICODERM CQ [Suspect]

REACTIONS (3)
  - APPLICATION SITE SCAB [None]
  - APPLICATION SITE SWELLING [None]
  - APPLICATION SITE URTICARIA [None]
